FAERS Safety Report 12725638 (Version 2)
Quarter: 2016Q4

REPORT INFORMATION
  Report Type: Spontaneous
  Country: TR (occurrence: TR)
  Receive Date: 20160908
  Receipt Date: 20161005
  Transmission Date: 20170207
  Serious: Yes (Other)
  Sender: FDA-Public Use
  Company Number: TR-ABBVIE-16P-161-1721997-00

PATIENT
  Age: 45 Year
  Sex: Male
  Weight: 80 kg

DRUGS (3)
  1. KLACID MR [Suspect]
     Active Substance: CLARITHROMYCIN
     Indication: BRONCHITIS BACTERIAL
     Dosage: DAILY DOSE: 2X1
     Route: 065
     Dates: start: 20160111, end: 20160115
  2. BRICANYL [Concomitant]
     Active Substance: TERBUTALINE SULFATE
     Indication: BRONCHITIS BACTERIAL
     Dosage: DAILY DOSE: 3X1
     Dates: start: 20160111, end: 20160115
  3. ASIST [Concomitant]
     Indication: BRONCHITIS BACTERIAL
     Dosage: DAILY DOSE: 1X1
     Dates: start: 20160111, end: 20160115

REACTIONS (1)
  - Duodenitis [Recovering/Resolving]

NARRATIVE: CASE EVENT DATE: 20160111
